FAERS Safety Report 4434875-7 (Version None)
Quarter: 2004Q3

REPORT INFORMATION
  Report Type: 
  Country: None (occurrence: None)
  Receive Date: 20040726
  Receipt Date: 20040517
  Transmission Date: 20050211
  Serious: No
  Sender: FDA-Public Use
  Company Number: USA030536741

PATIENT
  Age: 72 Year
  Sex: Female
  Weight: 39 kg

DRUGS (13)
  1. FORTEO [Suspect]
     Indication: OSTEOPOROSIS
     Dosage: 20 UG DAY
     Dates: start: 20030505, end: 20040101
  2. MULTIVITAMIN [Concomitant]
  3. DIOVAN [Concomitant]
  4. FOSAMAX (ALDENRONATE SODIUM) [Concomitant]
  5. HYDROCHLOROTHIAZIDE [Concomitant]
  6. LEVOXYL [Concomitant]
  7. OSCAL 500-D [Concomitant]
  8. PREMARIN [Concomitant]
  9. TIAZAC [Concomitant]
  10. TUMS E-X EXTRA STRENGTH (CALCIUM CARBONATE) [Concomitant]
  11. VITAMIN E [Concomitant]
  12. ALPRAZOLAM [Concomitant]
  13. ASPIRIN [Concomitant]

REACTIONS (4)
  - BONE DENSITY DECREASED [None]
  - BURNING SENSATION [None]
  - DYSGEUSIA [None]
  - SKIN BURNING SENSATION [None]
